FAERS Safety Report 9046172 (Version 1)
Quarter: 2013Q1

REPORT INFORMATION
  Report Type: Report from Study
  Country: SE (occurrence: SE)
  Receive Date: 20130201
  Receipt Date: 20130201
  Transmission Date: 20140127
  Serious: Yes (Life-Threatening, Hospitalization)
  Sender: FDA-Public Use
  Company Number: PHHO2013SE001757

PATIENT
  Age: 80 None
  Sex: Male
  Weight: 95.6 kg

DRUGS (9)
  1. DICLOFENAC [Suspect]
     Indication: ARTHRALGIA
     Dosage: 50 MG, TID
     Dates: start: 20121220, end: 20130101
  2. BLINDED ACZ885 [Suspect]
     Indication: CARDIOVASCULAR EVENT PROPHYLAXIS
     Dosage: CODE NOT BROKEN
     Route: 058
     Dates: start: 20121031, end: 20121115
  3. BLINDED NO TREATMENT RECEIVED [Suspect]
     Indication: CARDIOVASCULAR EVENT PROPHYLAXIS
     Dosage: CODE NOT BROKEN
     Route: 058
     Dates: start: 20121031, end: 20121115
  4. BLINDED PLACEBO [Suspect]
     Indication: CARDIOVASCULAR EVENT PROPHYLAXIS
     Dosage: CODE NOT BROKEN
     Route: 058
     Dates: start: 20121031, end: 20121115
  5. TROMBYL [Suspect]
     Dosage: 75 MG
     Dates: start: 200509
  6. LIPITOR [Concomitant]
     Indication: DYSLIPIDAEMIA
     Dosage: 10 MG
  7. METOPROLOL [Concomitant]
     Indication: MYOCARDIAL INFARCTION
     Dosage: 25 MG, UNK
     Dates: start: 200509
  8. ISOSORBIDE MONONITRATE [Concomitant]
     Indication: ANGINA PECTORIS
     Dosage: 60 MG
  9. MAGNESIUM [Concomitant]
     Indication: PERONEAL MUSCULAR ATROPHY
     Dosage: 500 MG, UNK
     Dates: start: 20121117

REACTIONS (4)
  - Rectal haemorrhage [Not Recovered/Not Resolved]
  - Anaemia [Not Recovered/Not Resolved]
  - Myocardial infarction [Not Recovered/Not Resolved]
  - Atrial fibrillation [Not Recovered/Not Resolved]
